FAERS Safety Report 8308657 (Version 2)
Quarter: 2012Q4

REPORT INFORMATION
  Report Type: 
  Country: US (occurrence: US)
  Receive Date: 20111222
  Receipt Date: 20121026
  Transmission Date: 20130627
  Serious: Yes (Death)
  Sender: FDA-Public Use
  Company Number: US-PFIZER INC-2011308735

PATIENT
  Age: 55 Year
  Sex: Male

DRUGS (4)
  1. SERTRALINE HCL [Suspect]
  2. VENLAFAXINE HYDROCHLORIDE [Suspect]
  3. THEOPHYLLINE [Suspect]
  4. METFORMIN HYDROCHLORIDE [Suspect]

REACTIONS (1)
  - Completed suicide [Fatal]
